FAERS Safety Report 18029593 (Version 1)
Quarter: 2020Q3

REPORT INFORMATION
  Report Type: Spontaneous
  Country: US (occurrence: US)
  Receive Date: 20200715
  Receipt Date: 20200715
  Transmission Date: 20201103
  Serious: No
  Sender: FDA-Public Use
  Company Number: US-009507513-2007USA005530

PATIENT
  Sex: Female

DRUGS (1)
  1. DIPROSPAN [Suspect]
     Active Substance: BETAMETHASONE DIPROPIONATE\BETAMETHASONE SODIUM PHOSPHATE
     Indication: RHEUMATOID ARTHRITIS
     Dosage: UNK UNK, QM
     Dates: start: 2017

REACTIONS (2)
  - Product dose omission issue [Unknown]
  - Circumstance or information capable of leading to medication error [Unknown]
